FAERS Safety Report 16159054 (Version 2)
Quarter: 2024Q3

REPORT INFORMATION
  Report Type: Spontaneous
  Country: DK (occurrence: DK)
  Receive Date: 20190404
  Receipt Date: 20240819
  Transmission Date: 20241016
  Serious: Yes (Death, Hospitalization, Other)
  Sender: SANOFI AVENTIS
  Company Number: None

PATIENT
  Age: 17 Year
  Sex: Male

DRUGS (13)
  1. OXALIPLATIN [Suspect]
     Active Substance: OXALIPLATIN
     Indication: Hepatocellular carcinoma
     Dosage: 85 MG/M2,QOW
     Route: 065
  2. CISPLATIN [Suspect]
     Active Substance: CISPLATIN
     Indication: Hepatocellular carcinoma
     Dosage: 100 MG/M2,1X
     Route: 065
  3. CISPLATIN [Suspect]
     Active Substance: CISPLATIN
     Dosage: 70 MG/M2,Q3W, GIVEN AS FIVE SERIES OF COMBINATION THERAPY (GCT THEREPY) GIVEN ON DAY 1 OF A 3-WEEK C
     Route: 065
  4. DOCETAXEL [Suspect]
     Active Substance: DOCETAXEL\DOCETAXEL ANHYDROUS
     Indication: Hepatocellular carcinoma
     Dosage: 175 MG/M2,Q3W, GIVEN AS FIVE SERIES OF COMBINATION THERAPY (GCT THEREPY) GIVEN ON DAY 1 OF A 3-WEEK
     Route: 065
  5. GEMCITABINE HYDROCHLORIDE [Suspect]
     Active Substance: GEMCITABINE HYDROCHLORIDE
     Indication: Hepatocellular carcinoma
     Dosage: 1000 MG/M2,UNK
     Route: 065
  6. GEMCITABINE HYDROCHLORIDE [Suspect]
     Active Substance: GEMCITABINE HYDROCHLORIDE
     Dosage: 1000 MG/M2,QOW
     Route: 065
  7. SORAFENIB [Suspect]
     Active Substance: SORAFENIB
     Indication: Hepatocellular carcinoma
     Dosage: 400 MG,BID
     Route: 048
  8. SORAFENIB [Suspect]
     Active Substance: SORAFENIB
     Dosage: 200 MG,QD
     Route: 048
  9. SORAFENIB [Suspect]
     Active Substance: SORAFENIB
     Dosage: 400 MG,QD
     Route: 048
  10. TAXOL [Suspect]
     Active Substance: PACLITAXEL
     Indication: Hepatocellular carcinoma
     Dosage: 175 MG/M2, Q3W, ON DAY 1 IN A 3-WEEK CYCLE
     Route: 065
  11. PEGFILGRASTIM [Concomitant]
     Active Substance: PEGFILGRASTIM
     Indication: Hepatocellular carcinoma
     Dosage: 4 MG, QCY ON DAY 2 OF EACH CYCLE
     Route: 058
  12. PEGFILGRASTIM [Concomitant]
     Active Substance: PEGFILGRASTIM
     Indication: Supportive care
  13. ERLOTINIB [Concomitant]
     Active Substance: ERLOTINIB
     Indication: Hepatocellular carcinoma
     Dosage: 100 MG, QD
     Route: 048

REACTIONS (15)
  - Malignant neoplasm progression [Fatal]
  - Vomiting [Recovered/Resolved]
  - Tinnitus [Recovered/Resolved]
  - Neutropenia [Recovered/Resolved]
  - Hepatic enzyme increased [Recovered/Resolved]
  - Diarrhoea [Recovered/Resolved]
  - Decreased appetite [Recovered/Resolved]
  - Anaemia [Recovered/Resolved]
  - Alopecia [Recovered/Resolved]
  - Paraesthesia [Recovered/Resolved]
  - Pruritus [Unknown]
  - Rash [Unknown]
  - Hepatocellular carcinoma [Unknown]
  - General physical health deterioration [Unknown]
  - Drug ineffective [Unknown]
